FAERS Safety Report 24529810 (Version 2)
Quarter: 2025Q3

REPORT INFORMATION
  Report Type: Report from Study
  Country: US (occurrence: US)
  Receive Date: 20241021
  Receipt Date: 20250821
  Transmission Date: 20251020
  Serious: No
  Sender: SUNOVION
  Company Number: US-SUMITOMO PHARMA SWITZERLAND GMBH-2024SPA003765

PATIENT
  Age: 62 Year
  Sex: Male

DRUGS (8)
  1. ORGOVYX [Suspect]
     Active Substance: RELUGOLIX
     Indication: Prostate cancer
     Dosage: 360 MG, SINGLE
     Route: 048
     Dates: start: 20240919, end: 20240919
  2. ORGOVYX [Suspect]
     Active Substance: RELUGOLIX
     Dosage: 120 MG, QD
     Route: 048
     Dates: start: 20240920
  3. NUBEQA [Concomitant]
     Active Substance: DAROLUTAMIDE
  4. DEXAMETHASONE [Concomitant]
     Active Substance: DEXAMETHASONE
  5. FAMOTIDINE [Concomitant]
     Active Substance: FAMOTIDINE
  6. LORATADINE [Concomitant]
     Active Substance: LORATADINE
  7. MONTELUKAST SODIUM [Concomitant]
     Active Substance: MONTELUKAST SODIUM
  8. XGEVA [Concomitant]
     Active Substance: DENOSUMAB

REACTIONS (2)
  - Groin pain [Unknown]
  - Weight decreased [Unknown]
